FAERS Safety Report 9353598 (Version 2)
Quarter: 2013Q3

REPORT INFORMATION
  Report Type: Report from Study
  Country: US (occurrence: US)
  Receive Date: 20130618
  Receipt Date: 20130715
  Transmission Date: 20140515
  Serious: Yes (Hospitalization, Other)
  Sender: FDA-Public Use
  Company Number: US-VERTEX PHARMACEUTICALS INC-2013-007114

PATIENT
  Age: 11 Year
  Sex: Female

DRUGS (1)
  1. VX-770 [Suspect]
     Indication: CYSTIC FIBROSIS
     Dosage: 150 MG, BID
     Route: 048
     Dates: start: 20120214

REACTIONS (3)
  - Staphylococcal infection [Not Recovered/Not Resolved]
  - Antibiotic prophylaxis [Recovered/Resolved]
  - Pulmonary function test decreased [Not Recovered/Not Resolved]
